FAERS Safety Report 4886058-4 (Version None)
Quarter: 2006Q1

REPORT INFORMATION
  Report Type: 
  Country: None (occurrence: None)
  Receive Date: 20060117
  Receipt Date: 20060106
  Transmission Date: 20060701
  Serious: Yes (Death)
  Sender: FDA-Public Use
  Company Number: 2006-01-0328

PATIENT
  Sex: Female

DRUGS (9)
  1. SALBUTAMOL ORAL AEROSOL (ALBUTEROL) [Suspect]
     Dosage: 200MCG QIDPRN ORAL AER I
     Route: 055
     Dates: start: 20040101, end: 20040101
  2. ATROVENT [Suspect]
     Dosage: 500 MCG QID ORAL AER INH
     Route: 055
  3. AMINOPHYLLIN [Suspect]
     Dosage: 225 MG QD
  4. CARBOCISTEINE [Suspect]
     Dosage: 750 MG TID
  5. LEVOFLOXACIN [Suspect]
     Dosage: 500 MG BID
  6. FUROSEMIDE [Suspect]
     Dosage: 40 MG QD
  7. TRAMADOL HCL [Suspect]
     Dosage: 50 MG TID
  8. PREDNISOLONE [Suspect]
     Dosage: 5 MG
  9. SALBUTAMOL INHALATION SOLUTION (ALBUTEROL) [Suspect]
     Dosage: 2.5MG QID PRN INHALATION
     Route: 055

REACTIONS (1)
  - INFECTIVE EXACERBATION OF CHRONIC OBSTRUCTIVE AIRWAYS DISEASE [None]
